FAERS Safety Report 19394564 (Version 1)
Quarter: 2021Q2

REPORT INFORMATION
  Report Type: Spontaneous
  Country: BR (occurrence: BR)
  Receive Date: 20210609
  Receipt Date: 20210609
  Transmission Date: 20210717
  Serious: Yes (Hospitalization)
  Sender: FDA-Public Use
  Company Number: BR-MYLANLABS-2021M1033565

PATIENT
  Age: 62 Year
  Sex: Female

DRUGS (4)
  1. 5?FLUOROURACIL                     /00098801/ [Suspect]
     Active Substance: FLUOROURACIL
     Indication: ADENOCARCINOMA PANCREAS
     Dosage: 400 MILLIGRAM/SQ. METER, CYCLEON DAY 1, FOR 10 MIN EVERY 2 WEEKS; RECEIVED EIGHT CYCLES
     Route: 065
  2. IRINOTECAN [Suspect]
     Active Substance: IRINOTECAN
     Indication: ADENOCARCINOMA PANCREAS
     Dosage: 180 MILLIGRAM/SQ. METER, CYCLEON DAY 1, FOR 90 MIN EVERY 2 WEEKS; RECEIVED EIGHT CYCLES
     Route: 065
  3. CALCIUM FOLINATE [Suspect]
     Active Substance: LEUCOVORIN CALCIUM
     Indication: ADENOCARCINOMA PANCREAS
     Dosage: 400 MILLIGRAM/SQ. METER, CYCLEON DAY 1, FOR 120 MIN EVERY 2 WEEKS; RECEIVED EIGHT CYCLES
     Route: 065
  4. OXALIPLATIN. [Suspect]
     Active Substance: OXALIPLATIN
     Indication: ADENOCARCINOMA PANCREAS
     Dosage: 85 MILLIGRAM/SQ. METER, CYCLEON DAY 1, FOR 120 MIN EVERY 2 WEEKS; RECEIVED EIGHT CYCLES
     Route: 065

REACTIONS (1)
  - Treatment failure [Unknown]
